FAERS Safety Report 18500555 (Version 1)
Quarter: 2020Q4

REPORT INFORMATION
  Report Type: Spontaneous
  Country: SI (occurrence: SI)
  Receive Date: 20201113
  Receipt Date: 20201113
  Transmission Date: 20210114
  Serious: Yes (Other)
  Sender: FDA-Public Use
  Company Number: SI-BAYER-2020-242665

PATIENT
  Age: 72 Year
  Sex: Female

DRUGS (3)
  1. NEXAVAR [Suspect]
     Active Substance: SORAFENIB
     Indication: HEPATOCELLULAR CARCINOMA
     Dosage: 2X 200 MG
     Dates: start: 201903
  2. NEXAVAR [Suspect]
     Active Substance: SORAFENIB
     Indication: HEPATOCELLULAR CARCINOMA
     Dosage: LOWER DOSE
     Dates: start: 201905
  3. NEXAVAR [Suspect]
     Active Substance: SORAFENIB
     Indication: HEPATOCELLULAR CARCINOMA
     Dosage: 400 MG IN THE MORNING AND 400 MG IN THE EVENING

REACTIONS (5)
  - Diarrhoea [None]
  - Fatigue [None]
  - Metastases to spine [None]
  - Cancer pain [None]
  - Retroperitoneal lymphadenopathy [None]

NARRATIVE: CASE EVENT DATE: 201904
